FAERS Safety Report 5908288-2 (Version None)
Quarter: 2008Q3

REPORT INFORMATION
  Report Type: 
  Country: None (occurrence: None)
  Receive Date: 20080930
  Receipt Date: 20080916
  Transmission Date: 20090109
  Serious: Yes (Hospitalization)
  Sender: FDA-Public Use
  Company Number: 238856J08USA

PATIENT
  Age: 56 Year
  Sex: Female

DRUGS (6)
  1. REBIF [Suspect]
     Indication: MULTIPLE SCLEROSIS
     Dosage: 44 MCG, 3 IN 1 WEEKS, SUBCUTANEOUS
     Route: 058
     Dates: start: 20021111
  2. DIOVAN [Concomitant]
  3. BACLOFEN [Concomitant]
  4. LEXAPRO [Concomitant]
  5. COUMADIN [Concomitant]
  6. URECHOLINE [Concomitant]

REACTIONS (3)
  - CATHETER RELATED COMPLICATION [None]
  - DISEASE RECURRENCE [None]
  - URINARY TRACT INFECTION [None]
